FAERS Safety Report 13556380 (Version 2)
Quarter: 2018Q2

REPORT INFORMATION
  Report Type: Spontaneous
  Country: US (occurrence: US)
  Receive Date: 20170517
  Receipt Date: 20180515
  Transmission Date: 20180711
  Serious: No
  Sender: FDA-Public Use
  Company Number: US-SA-2017SA033039

PATIENT
  Age: 57 Year
  Sex: Male
  Weight: 84 kg

DRUGS (6)
  1. LANTUS [Concomitant]
     Active Substance: INSULIN GLARGINE
     Dosage: DOSE:45 UNIT(S)
     Dates: start: 2015
  2. APIDRA [Concomitant]
     Active Substance: INSULIN GLULISINE
     Dosage: CURRENT DOSE, SLIDING SCALE 2-3 TIMES A DAY DOSE:10 UNIT(S)
     Dates: end: 2015
  3. TOUJEO [Suspect]
     Active Substance: INSULIN GLARGINE
     Indication: TYPE 2 DIABETES MELLITUS
     Dosage: 10-20 UNITS
     Route: 065
     Dates: start: 2015, end: 2015
  4. APIDRA [Concomitant]
     Active Substance: INSULIN GLULISINE
     Dates: start: 2015
  5. SOLOSTAR [Concomitant]
     Active Substance: DEVICE
     Indication: TYPE 2 DIABETES MELLITUS
     Dates: start: 2015, end: 2015
  6. LANTUS [Concomitant]
     Active Substance: INSULIN GLARGINE
     Dosage: DOSE:60 UNIT(S)
     Dates: end: 2015

REACTIONS (1)
  - Hypoglycaemia [Recovered/Resolved]

NARRATIVE: CASE EVENT DATE: 2015
